FAERS Safety Report 4803580-7 (Version None)
Quarter: 2005Q4

REPORT INFORMATION
  Report Type: 
  Country: None (occurrence: None)
  Receive Date: 20051013
  Receipt Date: 20051003
  Transmission Date: 20060501
  Serious: Yes (Death)
  Sender: FDA-Public Use
  Company Number: 143212USA

PATIENT
  Age: 77 Year
  Sex: Female

DRUGS (5)
  1. PROPOFOL [Suspect]
     Indication: SEDATION
     Dates: start: 20050522, end: 20050529
  2. PROPOFOL [Suspect]
     Indication: SEDATION
     Dates: start: 20050522, end: 20050529
  3. AMIODARONE HCL [Concomitant]
  4. MULTIPLE ANTIBIOTICS [Concomitant]
  5. MEDICATION FOR SUPPORTIVE MEASURE [Concomitant]

REACTIONS (8)
  - ATRIAL FIBRILLATION [None]
  - BLOOD BILIRUBIN INCREASED [None]
  - GENERAL PHYSICAL HEALTH DETERIORATION [None]
  - HEPATIC FAILURE [None]
  - KLEBSIELLA INFECTION [None]
  - MULTI-ORGAN FAILURE [None]
  - PNEUMONIA [None]
  - RENAL FAILURE [None]
